FAERS Safety Report 16370032 (Version 1)
Quarter: 2019Q2

REPORT INFORMATION
  Report Type: Spontaneous
  Country: FI (occurrence: FI)
  Receive Date: 20190530
  Receipt Date: 20190530
  Transmission Date: 20190711
  Serious: Yes (Other)
  Sender: FDA-Public Use
  Company Number: FI-TEVA-2019-FI-1055502

PATIENT

DRUGS (1)
  1. FLUDARABIN ACTAVIS [Suspect]
     Active Substance: FLUDARABINE PHOSPHATE
     Route: 065

REACTIONS (3)
  - Epilepsy [Unknown]
  - Wrong dose [Unknown]
  - Brain injury [Unknown]
